FAERS Safety Report 12965817 (Version 1)
Quarter: 2016Q4

REPORT INFORMATION
  Report Type: Spontaneous
  Country: CN (occurrence: CN)
  Receive Date: 20161122
  Receipt Date: 20161122
  Transmission Date: 20170207
  Serious: Yes (Other)
  Sender: FDA-Public Use
  Company Number: CN-ELI_LILLY_AND_COMPANY-CN201611006510

PATIENT
  Age: 75 Year
  Sex: Female

DRUGS (1)
  1. FORSTEO [Suspect]
     Active Substance: TERIPARATIDE
     Indication: PRODUCT USED FOR UNKNOWN INDICATION
     Dosage: 20 IU, QD
     Route: 058
     Dates: start: 201302

REACTIONS (5)
  - Arthralgia [Recovered/Resolved]
  - Pain [Unknown]
  - Bone pain [Recovering/Resolving]
  - Femur fracture [Unknown]
  - Fall [Unknown]
